FAERS Safety Report 8010186-8 (Version None)
Quarter: 2011Q4

REPORT INFORMATION
  Report Type: 
  Country: None (occurrence: None)
  Receive Date: 20111228
  Receipt Date: 20111215
  Transmission Date: 20120403
  Serious: Yes (Other)
  Sender: FDA-Public Use
  Company Number: JP-SANOFI-AVENTIS-2011SA083834

PATIENT

DRUGS (2)
  1. ALL OTHER THERAPEUTIC PRODUCTS [Suspect]
     Route: 048
  2. LANTUS [Suspect]
     Route: 065

REACTIONS (2)
  - LOSS OF CONSCIOUSNESS [None]
  - HYPERGLYCAEMIA [None]
